FAERS Safety Report 10184102 (Version 1)
Quarter: 2014Q2

REPORT INFORMATION
  Report Type: Spontaneous
  Country: US (occurrence: US)
  Receive Date: 20140520
  Receipt Date: 20140520
  Transmission Date: 20141212
  Serious: No
  Sender: FDA-Public Use
  Company Number: US-ASTRAZENECA-2013SE73634

PATIENT
  Age: 60 Year
  Sex: Female
  Weight: 66.2 kg

DRUGS (2)
  1. ENTOCORT EC [Suspect]
     Indication: COLITIS MICROSCOPIC
     Route: 048
     Dates: start: 2008
  2. ENTOCORT EC [Suspect]
     Indication: COLITIS MICROSCOPIC
     Route: 048
     Dates: start: 2008

REACTIONS (4)
  - Headache [Unknown]
  - Dizziness [Unknown]
  - Colitis microscopic [Unknown]
  - Therapy cessation [Unknown]
